FAERS Safety Report 16963111 (Version 1)
Quarter: 2019Q4

REPORT INFORMATION
  Report Type: Spontaneous
  Country: TR (occurrence: TR)
  Receive Date: 20191025
  Receipt Date: 20191025
  Transmission Date: 20200122
  Serious: Yes (Other)
  Sender: FDA-Public Use
  Company Number: TR-AMGEN-TURSP2019172224

PATIENT
  Age: 60 Year
  Sex: Female
  Weight: 82 kg

DRUGS (3)
  1. SINGLE DOSE PREFILLED AUTOINJECTOR(AMGEVITA) [Suspect]
     Active Substance: ADALIMUMAB
     Indication: RHEUMATOID ARTHRITIS
     Dosage: UNK, Q2WK
     Route: 058
     Dates: start: 2019, end: 201910
  2. RESPIRO [Concomitant]
     Indication: ASTHMA
  3. RESPIRO [Concomitant]
     Indication: SEASONAL ALLERGY
     Dosage: UNK

REACTIONS (8)
  - Hepatic infection [Recovering/Resolving]
  - Pruritus [Recovering/Resolving]
  - Bone pain [Recovering/Resolving]
  - Swelling of eyelid [Recovering/Resolving]
  - Scar [Recovering/Resolving]
  - Rash [Recovering/Resolving]
  - Pneumonia [Recovering/Resolving]
  - Dyspnoea [Recovering/Resolving]

NARRATIVE: CASE EVENT DATE: 2019
